FAERS Safety Report 14550802 (Version 1)
Quarter: 2018Q1

REPORT INFORMATION
  Report Type: Spontaneous
  Country: US (occurrence: US)
  Receive Date: 20180220
  Receipt Date: 20180220
  Transmission Date: 20180509
  Serious: Yes (Death)
  Sender: FDA-Public Use
  Company Number: US-INSYS THERAPEUTICS, INC-INS201802-000065

PATIENT
  Age: 66 Year
  Sex: Male

DRUGS (31)
  1. VITAMIN B12 [Concomitant]
     Active Substance: CYANOCOBALAMIN
  2. FLUOXETINE [Concomitant]
     Active Substance: FLUOXETINE HYDROCHLORIDE
  3. PROMETHAZINE [Concomitant]
     Active Substance: PROMETHAZINE\PROMETHAZINE HYDROCHLORIDE
  4. EXCEDRIN [Concomitant]
     Active Substance: ACETAMINOPHEN\ASPIRIN\CAFFEINE
  5. FLOMAX [Concomitant]
     Active Substance: TAMSULOSIN HYDROCHLORIDE
  6. MEGACE [Concomitant]
     Active Substance: MEGESTROL ACETATE
  7. OMEPRAZOLE. [Concomitant]
     Active Substance: OMEPRAZOLE
  8. RANITIDINE. [Concomitant]
     Active Substance: RANITIDINE
  9. CHOLESTYRAMINE. [Concomitant]
     Active Substance: CHOLESTYRAMINE
  10. LIDOCAINE. [Concomitant]
     Active Substance: LIDOCAINE
  11. PRIMIDONE. [Concomitant]
     Active Substance: PRIMIDONE
  12. TAMSULOSIN [Concomitant]
     Active Substance: TAMSULOSIN
  13. CELEBREX [Concomitant]
     Active Substance: CELECOXIB
  14. DEXAMETHASONE. [Concomitant]
     Active Substance: DEXAMETHASONE
  15. TYLENOL [Concomitant]
     Active Substance: ACETAMINOPHEN
  16. LORAZEPAM. [Concomitant]
     Active Substance: LORAZEPAM
  17. SCOPOLAMINE [Concomitant]
     Active Substance: SCOPOLAMINE
  18. SUBSYS [Suspect]
     Active Substance: FENTANYL
     Indication: BREAKTHROUGH PAIN
     Route: 060
  19. COLCHICINE. [Concomitant]
     Active Substance: COLCHICINE
  20. FORTESTA [Concomitant]
     Active Substance: TESTOSTERONE
  21. NORCO [Concomitant]
     Active Substance: ACETAMINOPHEN\HYDROCODONE BITARTRATE
  22. ACYCLOVIR. [Concomitant]
     Active Substance: ACYCLOVIR
  23. CLONAZEPAM. [Concomitant]
     Active Substance: CLONAZEPAM
  24. CYCLOBENZAPRINE. [Concomitant]
     Active Substance: CYCLOBENZAPRINE
  25. DURAGESIC [Concomitant]
     Active Substance: FENTANYL
  26. LOMOTIL [Concomitant]
     Active Substance: ATROPINE SULFATE\DIPHENOXYLATE HYDROCHLORIDE
  27. METOCLOPRAMIDE. [Concomitant]
     Active Substance: METOCLOPRAMIDE
  28. SIMVASTATIN. [Concomitant]
     Active Substance: SIMVASTATIN
  29. CALCIUM [Concomitant]
     Active Substance: CALCIUM
  30. METHOCARBAMOL. [Concomitant]
     Active Substance: METHOCARBAMOL
  31. OLANZAPINE. [Concomitant]
     Active Substance: OLANZAPINE

REACTIONS (1)
  - Neoplasm progression [Fatal]

NARRATIVE: CASE EVENT DATE: 20160519
